FAERS Safety Report 4775759-4 (Version None)
Quarter: 2005Q3

REPORT INFORMATION
  Report Type: 
  Country: None (occurrence: None)
  Receive Date: 20050921
  Receipt Date: 20050906
  Transmission Date: 20060218
  Serious: Yes (Death, Hospitalization)
  Sender: FDA-Public Use
  Company Number: 000#8#2005-00658

PATIENT
  Age: 81 Year
  Sex: Female

DRUGS (6)
  1. GLYCERYL TRINITRATE [Suspect]
     Indication: CARDIAC FAILURE
  2. CIPROFLOXACIN HCL [Suspect]
     Indication: RESPIRATORY TRACT INFECTION
  3. FUROSEMIDE [Suspect]
     Dosage: INTRAVENOUS
     Route: 042
  4. CELECOXIB (CELECOXIB) [Suspect]
  5. RAMIPRIL [Suspect]
  6. AMOXICILLIN/CLAVULANIC ACID (AMOXICILLIN, CLAVULANIC ACID) [Concomitant]

REACTIONS (5)
  - BLOOD POTASSIUM INCREASED [None]
  - DEHYDRATION [None]
  - HAEMODIALYSIS [None]
  - RENAL FAILURE ACUTE [None]
  - SOMNOLENCE [None]
